FAERS Safety Report 24242705 (Version 6)
Quarter: 2024Q4

REPORT INFORMATION
  Report Type: Spontaneous
  Country: CA (occurrence: CA)
  Receive Date: 20240823
  Receipt Date: 20241228
  Transmission Date: 20250115
  Serious: Yes (Other)
  Sender: CELLTRION
  Company Number: CA-PFIZER INC-202400233770

PATIENT

DRUGS (9)
  1. INFLECTRA [Suspect]
     Active Substance: INFLIXIMAB-DYYB
     Indication: Colitis ulcerative
     Dosage: 500 MG, AT WEEKS 0, 1, 2, 6, THEN EVERY 6 WEEKS
     Route: 042
     Dates: start: 20240808, end: 20240808
  2. INFLECTRA [Suspect]
     Active Substance: INFLIXIMAB-DYYB
     Dosage: 500 MG, AT WEEKS 0, 1, 2, 6, THEN EVERY 6 WEEKS
     Route: 042
     Dates: start: 20240813, end: 20240813
  3. INFLECTRA [Suspect]
     Active Substance: INFLIXIMAB-DYYB
     Dosage: 500 MG, AT WEEKS 0, 1, 2, 6, THEN EVERY 6 WEEKS
     Route: 042
     Dates: start: 20240919, end: 20240919
  4. INFLECTRA [Suspect]
     Active Substance: INFLIXIMAB-DYYB
     Dosage: 500 MG, EVERYMONTH(ONE DOSE ASAP, NEXT 14NOV2024 AND THEN MONTHLY)
     Route: 042
     Dates: start: 20241025
  5. INFLECTRA [Suspect]
     Active Substance: INFLIXIMAB-DYYB
     Dosage: 500 MG, AFTER 2 WEEKS 6 DAYS(ONE DOSE ASAP, NEXT 14NOV2024 AND THEN MONTHLY)
     Route: 042
     Dates: start: 20241114
  6. INFLECTRA [Suspect]
     Active Substance: INFLIXIMAB-DYYB
     Dosage: 500 MG, AFTER 4 WEEKS AND 6 DAYS (ONE DOSE ASAP, NEXT 14NOV2024 AND THEN MONTHLY)
     Route: 042
     Dates: start: 20241218
  7. HYDROCORTISONE [Concomitant]
     Active Substance: HYDROCORTISONE
     Dosage: UNK
  8. MESALAMINE [Concomitant]
     Active Substance: MESALAMINE
     Dosage: UNK
  9. PENTASA [Concomitant]
     Active Substance: MESALAMINE
     Dosage: UNK

REACTIONS (9)
  - Condition aggravated [Not Recovered/Not Resolved]
  - Decreased appetite [Recovering/Resolving]
  - Therapeutic response shortened [Unknown]
  - Rectal tenesmus [Not Recovered/Not Resolved]
  - Asthenia [Unknown]
  - Feeling cold [Unknown]
  - Fatigue [Unknown]
  - Feeling abnormal [Unknown]
  - Off label use [Unknown]

NARRATIVE: CASE EVENT DATE: 20240101
